FAERS Safety Report 10297365 (Version 3)
Quarter: 2015Q1

REPORT INFORMATION
  Report Type: Report from Study
  Country: US (occurrence: US)
  Receive Date: 20140711
  Receipt Date: 20150214
  Transmission Date: 20150720
  Serious: Yes (Hospitalization)
  Sender: FDA-Public Use
  Company Number: PHEH2014US013713

PATIENT
  Age: 80 Year
  Sex: Female
  Weight: 48.6 kg

DRUGS (1)
  1. EXJADE [Suspect]
     Active Substance: DEFERASIROX
     Indication: IRON OVERLOAD
     Dosage: 1500 MG DALILY, (3 TABLETS OF 500 MG)
     Route: 048
     Dates: start: 20140114

REACTIONS (3)
  - Fall [Unknown]
  - Neck injury [Unknown]
  - Spinal column injury [Unknown]

NARRATIVE: CASE EVENT DATE: 20140702
